FAERS Safety Report 26096335 (Version 1)
Quarter: 2025Q4

REPORT INFORMATION
  Report Type: Spontaneous
  Country: US (occurrence: US)
  Receive Date: 20251127
  Receipt Date: 20251127
  Transmission Date: 20260117
  Serious: No
  Sender: ALKEM
  Company Number: US-ALKEM LABORATORIES LIMITED-US-ALKEM-2025-10718

PATIENT

DRUGS (7)
  1. METFORMIN HYDROCHLORIDE [Suspect]
     Active Substance: METFORMIN HYDROCHLORIDE
     Indication: Diabetes mellitus
     Dosage: UNK (PRE-TREATMENT)
     Route: 048
  2. METFORMIN HYDROCHLORIDE [Suspect]
     Active Substance: METFORMIN HYDROCHLORIDE
     Indication: Squamous cell carcinoma of head and neck
     Dosage: 500 MILLIGRAM, QD (TAPERED DOSE)
     Route: 065
  3. METFORMIN HYDROCHLORIDE [Suspect]
     Active Substance: METFORMIN HYDROCHLORIDE
     Indication: Papilloma viral infection
     Dosage: 500 MILLIGRAM, BID (INCREASED DOSE)
     Route: 065
  4. METFORMIN HYDROCHLORIDE [Suspect]
     Active Substance: METFORMIN HYDROCHLORIDE
     Dosage: 1000 MILLIGRAM, BID (AFTER DAY 6)
     Route: 065
  5. METFORMIN HYDROCHLORIDE [Suspect]
     Active Substance: METFORMIN HYDROCHLORIDE
     Dosage: 2000 MILLIGRAM, QD (MAXIMUM DOSE)
     Route: 065
  6. DURVALUMAB [Concomitant]
     Active Substance: DURVALUMAB
     Indication: Papilloma viral infection
     Dosage: UNK (PRE-TREATMENT) (ON DAY 3)
     Route: 042
  7. DURVALUMAB [Concomitant]
     Active Substance: DURVALUMAB
     Indication: Squamous cell carcinoma of head and neck
     Dosage: 1500 MILLIGRAM (0.9 PERCENT 250 ML IVPB OVER 60 MINUTES)
     Route: 042

REACTIONS (1)
  - Dysgeusia [Unknown]
